FAERS Safety Report 7257562-9 (Version None)
Quarter: 2011Q1

REPORT INFORMATION
  Report Type: 
  Country: None (occurrence: None)
  Receive Date: 20110129
  Receipt Date: 20100601
  Transmission Date: 20110831
  Serious: No
  Sender: FDA-Public Use
  Company Number: US-ABBOTT-10P-163-0649143-00

PATIENT
  Sex: Female

DRUGS (4)
  1. FRAGMIN [Concomitant]
     Indication: THROMBOSIS PROPHYLAXIS
     Dates: start: 20091001
  2. HUMIRA [Suspect]
     Indication: COLITIS ULCERATIVE
     Dates: start: 20100501
  3. PROMETRIUM [Suspect]
     Indication: PRODUCT USED FOR UNKNOWN INDICATION
     Dates: start: 20100528
  4. ESTRADIOL [Concomitant]
     Indication: PRODUCT USED FOR UNKNOWN INDICATION
     Dates: start: 20100528

REACTIONS (3)
  - DIARRHOEA [None]
  - INSOMNIA [None]
  - PRURITUS [None]
